FAERS Safety Report 5886586-9 (Version None)
Quarter: 2008Q3

REPORT INFORMATION
  Report Type: 
  Country: None (occurrence: None)
  Receive Date: 20080917
  Receipt Date: 20080910
  Transmission Date: 20090109
  Serious: Yes (Other)
  Sender: FDA-Public Use
  Company Number: IE-ASTRAZENECA-2008GB01718

PATIENT
  Age: 67 Year
  Sex: Female

DRUGS (7)
  1. CRESTOR [Suspect]
     Indication: BLOOD CHOLESTEROL INCREASED
     Route: 048
  2. CENTYL [Concomitant]
  3. CALCICHEW D3 FORTE [Concomitant]
  4. ASPIRIN [Concomitant]
  5. INEGY [Concomitant]
  6. VASCASE [Concomitant]
  7. FOSAMAX [Concomitant]

REACTIONS (1)
  - CHEST PAIN [None]
